FAERS Safety Report 7123850-X (Version None)
Quarter: 2010Q4

REPORT INFORMATION
  Report Type: 
  Country: None (occurrence: None)
  Receive Date: 20101125
  Receipt Date: 20101119
  Transmission Date: 20110411
  Serious: Yes (Death, Hospitalization)
  Sender: FDA-Public Use
  Company Number: PHHY2010JP76395

PATIENT
  Age: 88 Year
  Sex: Male

DRUGS (1)
  1. VOLTAREN [Suspect]
     Indication: BACK PAIN
     Dosage: 3 DF, QD
     Route: 048

REACTIONS (3)
  - BLOOD UREA INCREASED [None]
  - HAEMATEMESIS [None]
  - HAEMOSTASIS [None]
